FAERS Safety Report 6435703-0 (Version None)
Quarter: 2009Q4

REPORT INFORMATION
  Report Type: 
  Country: None (occurrence: None)
  Receive Date: 20091111
  Receipt Date: 20091110
  Transmission Date: 20100525
  Serious: No
  Sender: FDA-Public Use
  Company Number: US-BAYER-200916298BCC

PATIENT
  Age: 89 Year

DRUGS (1)
  1. DESONATE GEL [Suspect]
     Indication: ROSACEA
     Route: 061
     Dates: start: 20080101

REACTIONS (1)
  - ROSACEA [None]
